FAERS Safety Report 18396098 (Version 3)
Quarter: 2021Q1

REPORT INFORMATION
  Report Type: Spontaneous
  Country: FR (occurrence: FR)
  Receive Date: 20201019
  Receipt Date: 20210205
  Transmission Date: 20210419
  Serious: No
  Sender: FDA-Public Use
  Company Number: FR-BEH-2020123449

PATIENT
  Age: 33 Year
  Sex: Female

DRUGS (3)
  1. PRIVIGEN [Suspect]
     Active Substance: HUMAN IMMUNOGLOBULIN G
     Indication: GUILLAIN-BARRE SYNDROME
     Dosage: AT LEAST 02 VIALS OF PRIVIGEN 20 GRAMS
     Route: 065
  2. PRIVIGEN [Suspect]
     Active Substance: HUMAN IMMUNOGLOBULIN G
     Dosage: 20 GRAMS, ONCE DAILY FOR 5 DAYS
     Route: 042
     Dates: start: 20201001, end: 20201005
  3. PRIVIGEN [Suspect]
     Active Substance: HUMAN IMMUNOGLOBULIN G
     Dosage: 20 GRAMS, ONCE DAILY FOR 5 DAYS
     Route: 042
     Dates: start: 20201001, end: 20201005

REACTIONS (5)
  - Exposure during pregnancy [Unknown]
  - Headache [Recovered/Resolved]
  - Cytomegalovirus test positive [Unknown]
  - Campylobacter test positive [Unknown]
  - No adverse event [Unknown]

NARRATIVE: CASE EVENT DATE: 202010
